FAERS Safety Report 5975180-7 (Version None)
Quarter: 2008Q4

REPORT INFORMATION
  Report Type: 
  Country: None (occurrence: None)
  Receive Date: 20081202
  Receipt Date: 20080805
  Transmission Date: 20090506
  Serious: No
  Sender: FDA-Public Use
  Company Number: US-ABBOTT-08P-163-0468575-00

PATIENT
  Sex: Female

DRUGS (3)
  1. LUPRON DEPOT [Suspect]
     Indication: REPRODUCTIVE TRACT DISORDER
     Dosage: 3.75MG ONCE A MONTH FOR 6  MONTHS
     Route: 030
     Dates: start: 20080325
  2. LUPRON DEPOT [Suspect]
     Indication: ENDOMETRIOSIS
  3. LUPRON DEPOT [Suspect]
     Indication: PELVIC PAIN

REACTIONS (2)
  - INJECTION SITE HYPERSENSITIVITY [None]
  - INJECTION SITE PAIN [None]
